FAERS Safety Report 10976930 (Version 7)
Quarter: 2015Q3

REPORT INFORMATION
  Report Type: Spontaneous
  Country: NO (occurrence: NO)
  Receive Date: 20150402
  Receipt Date: 20150903
  Transmission Date: 20151125
  Serious: Yes (Death, Other)
  Sender: FDA-Public Use
  Company Number: NO-009507513-1503NOR011840

PATIENT
  Age: 45 Year
  Sex: Male
  Weight: 94 kg

DRUGS (19)
  1. APREPITANT. [Suspect]
     Active Substance: APREPITANT
     Dosage: DAY 1 OF TRABECTEDIN CYCLE
     Dates: start: 20150115
  2. ESOMEPRAZOLE MAGNESIUM. [Suspect]
     Active Substance: ESOMEPRAZOLE MAGNESIUM
  3. YONDELIS [Suspect]
     Active Substance: TRABECTEDIN
     Dosage: DOSAGE FORM: LYOPHILIZED POWDER
     Route: 042
     Dates: start: 20150205, end: 20150206
  4. AFIPRAN [Concomitant]
     Dosage: UNK
     Route: 048
  5. APREPITANT. [Suspect]
     Active Substance: APREPITANT
     Dosage: DAY  2 AND DAY 3 (OF SECOND TRABECTEDIN CYCLE)
  6. LAXOBERAL [Concomitant]
     Active Substance: SODIUM PICOSULFATE
     Dosage: 10 DF, UNK
     Route: 048
     Dates: start: 20150115
  7. NEULASTA [Concomitant]
     Active Substance: PEGFILGRASTIM
     Indication: NEUTROPENIA
     Dosage: 6 MG, QD
     Route: 058
     Dates: start: 20150115
  8. OXYCONTIN [Concomitant]
     Active Substance: OXYCODONE HYDROCHLORIDE
     Indication: PAIN
  9. YONDELIS [Suspect]
     Active Substance: TRABECTEDIN
     Dosage: DOSAGE FORM: LYOPHILIZED POWDER
     Route: 042
     Dates: start: 20150115
  10. FURIX [Concomitant]
     Active Substance: FUROSEMIDE
     Indication: ACUTE KIDNEY INJURY
     Dosage: DOSAGE FORM: UNSPECIFIED
     Route: 040
     Dates: start: 20150213, end: 20150222
  11. LAXOBERAL [Concomitant]
     Active Substance: SODIUM PICOSULFATE
     Indication: CONSTIPATION
     Dosage: 10 DF, BID
     Route: 048
  12. AFIPRAN [Concomitant]
     Indication: NAUSEA
     Dosage: DOSAGE FORM: UNSPECIFIED
     Route: 048
     Dates: start: 20150115
  13. OXYCONTIN [Concomitant]
     Active Substance: OXYCODONE HYDROCHLORIDE
     Indication: PAIN
     Dosage: 10 MG, BID
     Route: 048
     Dates: start: 20150219, end: 20150222
  14. DUPHALAC [Concomitant]
     Active Substance: LACTULOSE
     Indication: CONSTIPATION
     Dosage: 15 ML, BID
     Route: 048
     Dates: start: 20150115
  15. MEROPENEM. [Concomitant]
     Active Substance: MEROPENEM
     Indication: INFECTION
     Dosage: 500 MG, TID
     Route: 040
     Dates: start: 20150218, end: 20150222
  16. DEXAMETHASONE. [Concomitant]
     Active Substance: DEXAMETHASONE
     Indication: PREMEDICATION
     Route: 048
     Dates: start: 20150115
  17. ONDANSETRON [Concomitant]
     Active Substance: ONDANSETRON
     Indication: NAUSEA
     Route: 048
     Dates: start: 20150115
  18. YONDELIS [Suspect]
     Active Substance: TRABECTEDIN
     Indication: SARCOMA METASTATIC
     Dosage: 1.5 MG/M2, Q3W
     Route: 041
     Dates: start: 20150115, end: 20150206
  19. AZITHROMYCIN [Concomitant]
     Active Substance: AZITHROMYCIN ANHYDROUS
     Indication: INFECTION
     Dosage: 500 MG, QD
     Route: 048
     Dates: start: 20150218, end: 20150222

REACTIONS (4)
  - Hepatic failure [Not Recovered/Not Resolved]
  - Bone marrow failure [Not Recovered/Not Resolved]
  - Rhabdomyolysis [Fatal]
  - Acute kidney injury [Fatal]

NARRATIVE: CASE EVENT DATE: 20150209
